FAERS Safety Report 5250099-8 (Version None)
Quarter: 2007Q1

REPORT INFORMATION
  Report Type: 
  Country: None (occurrence: None)
  Receive Date: 20070228
  Receipt Date: 20060220
  Transmission Date: 20070707
  Serious: No
  Sender: FDA-Public Use
  Company Number: US-GLAXOSMITHKLINE-A0592481A

PATIENT
  Age: 5 Year
  Sex: Male
  Weight: 21.8 kg

DRUGS (4)
  1. LAMICTAL [Suspect]
     Indication: ATTENTION DEFICIT/HYPERACTIVITY DISORDER
     Dosage: 25MG PER DAY
     Route: 048
     Dates: start: 20051123, end: 20060206
  2. DEXEDRINE [Concomitant]
  3. CLONIDINE [Concomitant]
  4. ABILIFY [Concomitant]

REACTIONS (2)
  - LOOSE TOOTH [None]
  - TOOTH LOSS [None]
